FAERS Safety Report 12100003 (Version 5)
Quarter: 2016Q1

REPORT INFORMATION
  Report Type: Spontaneous
  Country: ES (occurrence: ES)
  Receive Date: 20160222
  Receipt Date: 20160307
  Transmission Date: 20160526
  Serious: Yes (Life-Threatening, Hospitalization)
  Sender: FDA-Public Use
  Company Number: CHPA2016ES001965

PATIENT
  Age: 37 Year
  Sex: Male

DRUGS (8)
  1. NICOTINELL [Interacting]
     Active Substance: NICOTINE
     Indication: SUICIDE ATTEMPT
     Dosage: 12 MG, A DAY
     Route: 048
     Dates: start: 20141109, end: 20141109
  2. AMLODIPINE [Interacting]
     Active Substance: AMLODIPINE BESYLATE
     Indication: SUICIDE ATTEMPT
     Dosage: 50 MG, A DAY
     Route: 048
     Dates: start: 20141109, end: 20141109
  3. DICLOFENAC [Interacting]
     Active Substance: DICLOFENAC
     Indication: SUICIDE ATTEMPT
     Dosage: 750 MG, A DAY
     Route: 048
     Dates: start: 20141109, end: 20141109
  4. NOLOTIL                                 /SPA/ [Interacting]
     Active Substance: METAMIZOLE
     Indication: SUICIDE ATTEMPT
     Dosage: 5.75 G, A DAY
     Route: 048
     Dates: start: 20141109, end: 20141109
  5. PARACETAMOL [Interacting]
     Active Substance: ACETAMINOPHEN
     Indication: PRODUCT USED FOR UNKNOWN INDICATION
     Dosage: 13 G, A DAY
     Route: 048
     Dates: start: 20141109, end: 20141109
  6. IBUPROFEN. [Suspect]
     Active Substance: IBUPROFEN
     Indication: SUICIDE ATTEMPT
     Dosage: 8 G, A DAY
     Route: 048
     Dates: start: 20141109, end: 20141109
  7. FLATORIL                           /05669101/ [Interacting]
     Active Substance: CLEBOPRIDE MALATE\DIMETHICONE
     Indication: SUICIDE ATTEMPT
     Dosage: 15 DF, A DAY
     Route: 048
     Dates: start: 20141109, end: 20141109
  8. ZOLPIDEM [Interacting]
     Active Substance: ZOLPIDEM\ZOLPIDEM TARTRATE
     Indication: SUICIDE ATTEMPT
     Dosage: 100 MG, A DAY
     Route: 048
     Dates: start: 20141109, end: 20141109

REACTIONS (2)
  - Drug interaction [Recovered/Resolved]
  - Distributive shock [Recovered/Resolved]

NARRATIVE: CASE EVENT DATE: 20141109
